FAERS Safety Report 20269333 (Version 2)
Quarter: 2022Q1

REPORT INFORMATION
  Report Type: Spontaneous
  Country: JP (occurrence: JP)
  Receive Date: 20220101
  Receipt Date: 20220112
  Transmission Date: 20220424
  Serious: Yes (Hospitalization)
  Sender: FDA-Public Use
  Company Number: JP-MTPC-MTPC2021-0032311

PATIENT
  Age: 67 Year
  Sex: Male

DRUGS (12)
  1. CANAGLIFLOZIN [Suspect]
     Active Substance: CANAGLIFLOZIN
     Indication: Diabetes mellitus
     Dosage: 100 MILLIGRAM, QD
     Route: 048
  2. FUROSEMIDE [Concomitant]
     Active Substance: FUROSEMIDE
     Dosage: 20 MILLIGRAM, BID
     Route: 048
  3. AZOSEMIDE [Concomitant]
     Active Substance: AZOSEMIDE
     Dosage: 30 MILLIGRAM, QD
     Route: 048
  4. METFORMIN HYDROCHLORIDE [Concomitant]
     Active Substance: METFORMIN HYDROCHLORIDE
     Dosage: 500 MILLIGRAM, BID
     Route: 048
  5. CANDESARTAN [Concomitant]
     Active Substance: CANDESARTAN
     Dosage: 12 MILLIGRAM, QD
     Route: 048
  6. REPAGLINIDE [Concomitant]
     Active Substance: REPAGLINIDE
     Dosage: 0.25 MILLIGRAM, BID
     Route: 048
  7. REPAGLINIDE [Concomitant]
     Active Substance: REPAGLINIDE
     Dosage: 0.5 MILLIGRAM, QD
     Route: 048
  8. REPAGLINIDE [Concomitant]
     Active Substance: REPAGLINIDE
     Dosage: 1 MILLIGRAM, QD
     Route: 048
  9. INSULIN DEGLUDEC;LIRAGLUTIDE [Concomitant]
     Dosage: 35 DOSAGE FORM, QD
     Route: 051
  10. INSULIN DEGLUDEC;LIRAGLUTIDE [Concomitant]
     Dosage: 25 DOSAGE FORM, QD
     Route: 051
  11. INSULIN DEGLUDEC;LIRAGLUTIDE [Concomitant]
     Dosage: 18 DOSAGE FORM, QD
     Route: 051
  12. CYCLOSPORINE [Concomitant]
     Active Substance: CYCLOSPORINE
     Dosage: 150 MILLIGRAM, QD
     Route: 065

REACTIONS (2)
  - Nephrotic syndrome [Recovering/Resolving]
  - Hypoglycaemia [Recovered/Resolved]
